FAERS Safety Report 23196773 (Version 2)
Quarter: 2023Q4

REPORT INFORMATION
  Report Type: Report from Study
  Country: EG (occurrence: EG)
  Receive Date: 20231117
  Receipt Date: 20231127
  Transmission Date: 20240110
  Serious: Yes (Hospitalization)
  Sender: FDA-Public Use
  Company Number: EG-SANDOZ-SDZ2023EG054542

PATIENT
  Age: 6 Year
  Sex: Male
  Weight: 20 kg

DRUGS (1)
  1. OMNITROPE [Suspect]
     Active Substance: SOMATROPIN
     Indication: Growth hormone deficiency
     Dosage: 0.7MG/DAY INCREASED TO 0.8 MG/DAY DUE TO INCREASE IN NORMAL GROWTH
     Route: 058
     Dates: start: 20220609

REACTIONS (8)
  - Ocular hyperaemia [Recovered/Resolved]
  - Face injury [Recovered/Resolved]
  - Eye injury [Recovered/Resolved]
  - Nasal injury [Recovered/Resolved]
  - Hyperventilation [Recovered/Resolved]
  - Dyspnoea [Recovered/Resolved]
  - Wrong technique in product usage process [Unknown]
  - Multiple use of single-use product [Unknown]

NARRATIVE: CASE EVENT DATE: 20220609
